FAERS Safety Report 7411863-X (Version None)
Quarter: 2011Q2

REPORT INFORMATION
  Report Type: 
  Country: None (occurrence: None)
  Receive Date: 20110405
  Receipt Date: 20110330
  Transmission Date: 20111010
  Serious: Yes (Other)
  Sender: FDA-Public Use
  Company Number: 2011SP009626

PATIENT
  Age: 56 Year
  Sex: Female

DRUGS (12)
  1. VINCRISTINE [Suspect]
     Indication: ACUTE LYMPHOCYTIC LEUKAEMIA
     Dosage: 2 MG;VAG
     Route: 067
  2. ALLOPURINOL [Concomitant]
  3. PROCHLORPERAZINE TAB [Concomitant]
  4. POSACONAZOLE [Suspect]
     Indication: ANTIFUNGAL PROPHYLAXIS
     Dosage: 200 MG;TID
     Dates: start: 20100927
  5. PREDNISONE [Concomitant]
  6. PANTOPRAZOLE [Concomitant]
  7. ELSPAR [Concomitant]
  8. METHOTREXATE [Concomitant]
  9. CONJUGATED ESTROGENS [Concomitant]
  10. DAUNORUBICIN HCL [Concomitant]
  11. CALCIUM WITH VITAMIN D [Concomitant]
  12. GRANISETRON HCL [Concomitant]

REACTIONS (18)
  - INSOMNIA [None]
  - HYPONATRAEMIA [None]
  - NEUROTOXICITY [None]
  - ANXIETY [None]
  - CONSTIPATION [None]
  - CHEST PAIN [None]
  - MYALGIA [None]
  - NAUSEA [None]
  - ILEUS [None]
  - WEIGHT DECREASED [None]
  - DIARRHOEA [None]
  - VOMITING [None]
  - MALNUTRITION [None]
  - HYPERTENSION [None]
  - LIVER FUNCTION TEST ABNORMAL [None]
  - FEBRILE NEUTROPENIA [None]
  - HEART RATE INCREASED [None]
  - GENERAL PHYSICAL HEALTH DETERIORATION [None]
